FAERS Safety Report 9942916 (Version 1)
Quarter: 2014Q1

REPORT INFORMATION
  Report Type: Report from Study
  Country: US (occurrence: US)
  Receive Date: 20140303
  Receipt Date: 20140303
  Transmission Date: 20141002
  Serious: No
  Sender: FDA-Public Use
  Company Number: US-ABBVIE-13P-163-1044198-00

PATIENT
  Age: 19 Year
  Sex: Male
  Weight: 50.39 kg

DRUGS (3)
  1. HUMIRA [Suspect]
     Indication: CROHN^S DISEASE
     Dosage: LOADING DOSE
     Dates: start: 20130121, end: 20130121
  2. ASACOL [Concomitant]
     Indication: CROHN^S DISEASE
  3. PROTONIX [Concomitant]
     Indication: DYSPEPSIA

REACTIONS (3)
  - Rectal haemorrhage [Recovered/Resolved]
  - Abdominal pain upper [Recovered/Resolved]
  - Diarrhoea [Recovered/Resolved]
